FAERS Safety Report 10045419 (Version 3)
Quarter: 2014Q2

REPORT INFORMATION
  Report Type: Spontaneous
  Country: US (occurrence: US)
  Receive Date: 20140328
  Receipt Date: 20140513
  Transmission Date: 20141212
  Serious: Yes (Death, Hospitalization)
  Sender: FDA-Public Use
  Company Number: US-AMGEN-USASP2014021143

PATIENT
  Age: 94 Year
  Sex: Female

DRUGS (1)
  1. PROLIA [Suspect]
     Indication: OSTEOPOROSIS
     Route: 065

REACTIONS (7)
  - Cerebrovascular accident [Fatal]
  - Dementia [Fatal]
  - Coronary artery disease [Fatal]
  - Myocardial infarction [Fatal]
  - Hypoxia [Unknown]
  - Fracture [Fatal]
  - Fall [Fatal]
